FAERS Safety Report 15804653 (Version 1)
Quarter: 2019Q1

REPORT INFORMATION
  Report Type: Report from Study
  Country: US (occurrence: US)
  Receive Date: 20190109
  Receipt Date: 20190109
  Transmission Date: 20190417
  Serious: Yes (Hospitalization, Other)
  Sender: FDA-Public Use
  Company Number: US-GILEAD-2018-0381005

PATIENT
  Age: 63 Year
  Sex: Male

DRUGS (1)
  1. LEDIPASVIR/SOFOSBUVIR [Suspect]
     Active Substance: LEDIPASVIR\SOFOSBUVIR
     Indication: CHRONIC HEPATITIS C
     Dosage: 1 DF, QD
     Route: 048
     Dates: start: 20180201, end: 20180401

REACTIONS (4)
  - Hepatitis C [Not Recovered/Not Resolved]
  - Skin cancer [Recovered/Resolved]
  - Drug ineffective [Not Recovered/Not Resolved]
  - Blood cholesterol abnormal [Unknown]

NARRATIVE: CASE EVENT DATE: 2018
